FAERS Safety Report 4468034-9 (Version None)
Quarter: 2004Q4

REPORT INFORMATION
  Report Type: 
  Country: None (occurrence: None)
  Receive Date: 20041004
  Receipt Date: 20041004
  Transmission Date: 20050328
  Serious: Yes (Other)
  Sender: FDA-Public Use
  Company Number: None

PATIENT
  Age: 62 Year
  Sex: Male
  Weight: 80.3 kg

DRUGS (4)
  1. SIMVASTATIN [Suspect]
  2. ACETAMNOPHEN [Concomitant]
  3. IPRATROPIUM BROMIDE INH [Concomitant]
  4. ALBUTEROL IHN [Concomitant]

REACTIONS (1)
  - MYALGIA [None]
